FAERS Safety Report 5090814-X (Version None)
Quarter: 2006Q3

REPORT INFORMATION
  Report Type: 
  Country: None (occurrence: None)
  Receive Date: 20060823
  Receipt Date: 20060810
  Transmission Date: 20061208
  Serious: Yes (Death, Life-Threatening)
  Sender: FDA-Public Use
  Company Number: HQWYE398214AUG06

PATIENT
  Age: 69 Year
  Sex: Female

DRUGS (4)
  1. GEMTUZUMAB OZOGAMICIN (GEMTUZUMAB OZOGAMICIN, INJECTION) [Suspect]
     Indication: ACUTE MYELOID LEUKAEMIA
     Dosage: 5 MG 1X PER 2 WK INTRAVENOUS
     Route: 042
     Dates: start: 20060713, end: 20060727
  2. SODIUM BICARBONATE IN PLASTIC CONTAINER [Concomitant]
  3. ALLOPURINOL [Concomitant]
  4. ALLERMIN (CHLORPHENAMINE MALEATE) [Concomitant]

REACTIONS (4)
  - DRUG EFFECT DECREASED [None]
  - HAEMORRHAGE INTRACRANIAL [None]
  - PLATELET COUNT DECREASED [None]
  - WHITE BLOOD CELL COUNT DECREASED [None]
